FAERS Safety Report 4268092-0 (Version None)
Quarter: 2004Q1

REPORT INFORMATION
  Report Type: 
  Country: None (occurrence: None)
  Receive Date: 20040109
  Receipt Date: 20040109
  Transmission Date: 20041129
  Serious: Yes (Other)
  Sender: FDA-Public Use
  Company Number: None

PATIENT
  Age: 28 Year
  Sex: Female
  Weight: 70.3075 kg

DRUGS (1)
  1. CELEXA [Suspect]
     Indication: ANXIETY
     Dosage: 40 MG DAY ORAL
     Route: 048
     Dates: start: 20021115, end: 20041205

REACTIONS (9)
  - ABNORMAL SENSATION IN EYE [None]
  - ANGER [None]
  - ANXIETY [None]
  - DRUG DEPENDENCE [None]
  - DRUG WITHDRAWAL SYNDROME [None]
  - FEELING ABNORMAL [None]
  - MIGRAINE [None]
  - PARAESTHESIA [None]
  - VISUAL DISTURBANCE [None]
